FAERS Safety Report 9144093 (Version 1)
Quarter: 2013Q1

REPORT INFORMATION
  Report Type: Spontaneous
  Country: US (occurrence: US)
  Receive Date: 20130306
  Receipt Date: 20130306
  Transmission Date: 20140127
  Serious: Yes (Other)
  Sender: FDA-Public Use
  Company Number: US-ELI_LILLY_AND_COMPANY-US201302010395

PATIENT
  Sex: Male

DRUGS (4)
  1. CIALIS [Suspect]
     Indication: ERECTILE DYSFUNCTION
     Dosage: 5 MG, QD
     Dates: start: 201208, end: 201211
  2. CIALIS [Suspect]
     Dosage: 1 DF, UNKNOWN
  3. OMEPRAZOLE [Concomitant]
     Indication: ABDOMINAL PAIN
     Dosage: 1 DF, UNKNOWN
     Dates: start: 201208
  4. WELLBUTRIN [Concomitant]
     Indication: DEPRESSION
     Dosage: 150 MG, BID

REACTIONS (7)
  - Throat tightness [Not Recovered/Not Resolved]
  - Vision blurred [Not Recovered/Not Resolved]
  - Dizziness [Not Recovered/Not Resolved]
  - Erythema [Not Recovered/Not Resolved]
  - Back pain [Not Recovered/Not Resolved]
  - Abdominal pain [Unknown]
  - Wrong technique in drug usage process [Not Recovered/Not Resolved]
